FAERS Safety Report 19677711 (Version 2)
Quarter: 2022Q1

REPORT INFORMATION
  Report Type: Spontaneous
  Country: US (occurrence: US)
  Receive Date: 20210810
  Receipt Date: 20220110
  Transmission Date: 20220424
  Serious: No
  Sender: FDA-Public Use
  Company Number: US-GW PHARMA-202108USGW03838

PATIENT

DRUGS (1)
  1. EPIDIOLEX [Suspect]
     Active Substance: CANNABIDIOL
     Indication: Lennox-Gastaut syndrome
     Dosage: 8.7 MG/KG, 220 MILLIGRAM, BID
     Route: 048
     Dates: start: 202011

REACTIONS (2)
  - Weight increased [Unknown]
  - Weight increased [Unknown]
